FAERS Safety Report 19631786 (Version 2)
Quarter: 2021Q3

REPORT INFORMATION
  Report Type: Spontaneous
  Country: US (occurrence: US)
  Receive Date: 20210728
  Receipt Date: 20210810
  Transmission Date: 20211014
  Serious: Yes (Other)
  Sender: FDA-Public Use
  Company Number: US-PURDUE-USA-2021-0277688

PATIENT
  Sex: Male

DRUGS (1)
  1. OXYCONTIN [Suspect]
     Active Substance: OXYCODONE HYDROCHLORIDE
     Indication: PAIN
     Dosage: UNKNOWN
     Route: 048

REACTIONS (13)
  - Hypoacusis [Unknown]
  - Eye disorder [Unknown]
  - Craniocerebral injury [Unknown]
  - Cognitive disorder [Unknown]
  - Speech disorder [Unknown]
  - Developmental delay [Unknown]
  - Face injury [Unknown]
  - Surgery [Unknown]
  - Depression [Unknown]
  - Learning disability [Unknown]
  - Suicide attempt [Unknown]
  - Hallucination [Unknown]
  - Nightmare [Unknown]
